FAERS Safety Report 17548943 (Version 1)
Quarter: 2020Q1

REPORT INFORMATION
  Report Type: Spontaneous
  Country: US (occurrence: US)
  Receive Date: 20200317
  Receipt Date: 20200317
  Transmission Date: 20200409
  Serious: Yes (Death, Other)
  Sender: FDA-Public Use
  Company Number: US-CIPLA LTD.-2020US01736

PATIENT

DRUGS (3)
  1. DECITABINE. [Suspect]
     Active Substance: DECITABINE
     Indication: ACUTE MYELOID LEUKAEMIA REFRACTORY
     Dosage: 20 MG/M^2 ? 5 DAYS (IN SALVAGE-2 SETTING)
     Route: 065
  2. VENETOCLAX. [Suspect]
     Active Substance: VENETOCLAX
     Indication: ACUTE MYELOID LEUKAEMIA REFRACTORY
     Dosage: 100 TO 800 MG (STARTING DOSE) (IN SALVAGE-2 SETTING)
     Route: 048
  3. VENETOCLAX. [Suspect]
     Active Substance: VENETOCLAX
     Dosage: 200 MG (MAINTENANCE DOSE) (IN SALVAGE-2 SETTING)
     Route: 048

REACTIONS (4)
  - Thrombocytopenia [Recovering/Resolving]
  - Pneumonia [Fatal]
  - Respiratory failure [Fatal]
  - Neutropenia [Recovering/Resolving]
